FAERS Safety Report 7240355-6 (Version None)
Quarter: 2011Q1

REPORT INFORMATION
  Report Type: 
  Country: None (occurrence: None)
  Receive Date: 20110113
  Receipt Date: 20101228
  Transmission Date: 20110831
  Serious: Yes (Hospitalization)
  Sender: FDA-Public Use
  Company Number: 016791

PATIENT
  Sex: Female
  Weight: 52.8 kg

DRUGS (10)
  1. PREDNISOLONE [Suspect]
     Indication: RHEUMATOID ARTHRITIS
     Dosage: (2.5 MG ORAL)
     Route: 048
     Dates: start: 19981218
  2. SOFALCONE [Concomitant]
  3. CIMZIA [Suspect]
     Indication: RHEUMATOID ARTHRITIS
     Dosage: SEE IMAGE
     Route: 058
     Dates: start: 20100421, end: 20100715
  4. CIMZIA [Suspect]
     Indication: RHEUMATOID ARTHRITIS
     Dosage: SEE IMAGE
     Route: 058
     Dates: start: 20091101, end: 20100408
  5. CIMZIA [Suspect]
     Indication: RHEUMATOID ARTHRITIS
     Dosage: SEE IMAGE
     Route: 058
     Dates: start: 20091007, end: 20091101
  6. ISONIAZID [Concomitant]
  7. KETOPROFEN [Concomitant]
  8. METHOTREXATE [Suspect]
     Indication: RHEUMATOID ARTHRITIS
     Dosage: (6 MG(4MG - 2MG) /WEEK ORAL)
     Route: 048
     Dates: start: 20090613
  9. FELBINAC [Concomitant]
  10. ETODOLAC [Concomitant]

REACTIONS (13)
  - HYPERTENSION [None]
  - MENINGITIS [None]
  - MEMORY IMPAIRMENT [None]
  - DISTURBANCE IN ATTENTION [None]
  - POST PROCEDURAL COMPLICATION [None]
  - SUBARACHNOID HAEMORRHAGE [None]
  - PERIARTHRITIS [None]
  - CEREBELLAR ATROPHY [None]
  - CEREBROVASCULAR SPASM [None]
  - RUPTURED CEREBRAL ANEURYSM [None]
  - BRAIN CONTUSION [None]
  - NORMAL PRESSURE HYDROCEPHALUS [None]
  - ARTHRALGIA [None]
